FAERS Safety Report 8685655 (Version 3)
Quarter: 2013Q1

REPORT INFORMATION
  Report Type: Spontaneous
  Country: US (occurrence: US)
  Receive Date: 20120726
  Receipt Date: 20130325
  Transmission Date: 20140127
  Serious: No
  Sender: FDA-Public Use
  Company Number: US-ASTRAZENECA-2011SE56087

PATIENT
  Age: 44 Year
  Sex: Female
  Weight: 74.8 kg

DRUGS (2)
  1. SEROQUEL [Suspect]
     Indication: DEPRESSION
     Route: 048
  2. FLUE SHOT [Suspect]
     Route: 065

REACTIONS (5)
  - Malaise [Unknown]
  - Fall [Unknown]
  - Gait disturbance [Unknown]
  - Fibromyalgia [Unknown]
  - Adverse event [Unknown]
